FAERS Safety Report 7328877-0 (Version None)
Quarter: 2011Q1

REPORT INFORMATION
  Report Type: 
  Country: None (occurrence: None)
  Receive Date: 20110303
  Receipt Date: 20110224
  Transmission Date: 20110831
  Serious: Yes (Other)
  Sender: FDA-Public Use
  Company Number: US-ROCHE-762437

PATIENT
  Sex: Female

DRUGS (1)
  1. TAMIFLU [Suspect]
     Route: 065

REACTIONS (6)
  - AMNESIA [None]
  - BLISTER [None]
  - BLINDNESS UNILATERAL [None]
  - BURNING SENSATION [None]
  - SWELLING FACE [None]
  - CONFUSIONAL STATE [None]
